FAERS Safety Report 8893429 (Version 1)
Quarter: 2012Q4

REPORT INFORMATION
  Report Type: 
  Country: US (occurrence: US)
  Receive Date: 20121107
  Receipt Date: 20121107
  Transmission Date: 20130627
  Serious: No
  Sender: FDA-Public Use
  Company Number: US-AMGEN-USASP2011053197

PATIENT
  Age: 59 Year
  Sex: Female

DRUGS (8)
  1. ENBREL [Suspect]
     Indication: PRODUCT USED FOR UNKNOWN INDICATION
     Dosage: 50 mg, qwk
     Route: 058
  2. CENTRUM SILVER [Concomitant]
  3. METHOTREXATE [Concomitant]
     Dosage: 2.5 mg, UNK
  4. GABAPENTIN [Concomitant]
     Dosage: 100 mg, UNK
  5. CITALOPRAM [Concomitant]
     Dosage: 20 mg, UNK
  6. HYDROCODONE W/APAP [Concomitant]
  7. ASA [Concomitant]
     Dosage: 81 mg, UNK
  8. FOLIC ACID [Concomitant]
     Dosage: 20 mg, UNK

REACTIONS (4)
  - Fatigue [Recovered/Resolved]
  - Dysphonia [Recovered/Resolved]
  - Eyelid infection [Recovered/Resolved]
  - Rash [Recovered/Resolved]
